FAERS Safety Report 6334810-0 (Version None)
Quarter: 2009Q3

REPORT INFORMATION
  Report Type: 
  Country: None (occurrence: None)
  Receive Date: 20090826
  Receipt Date: 20090811
  Transmission Date: 20100115
  Serious: Yes (Hospitalization)
  Sender: FDA-Public Use
  Company Number: AUR-APL-2009-00479

PATIENT
  Age: 62 Year
  Sex: Male

DRUGS (5)
  1. HYDROCHLOROTHIAZIDE [Suspect]
     Indication: HYPERTENSION
     Dosage: 25MG - DAILY - ORAL
     Route: 048
     Dates: start: 20090522, end: 20090619
  2. AZOR [Suspect]
     Indication: HYPERTENSION
     Dosage: 10/40MG - DAILY - ORAL
     Route: 048
     Dates: start: 20090327, end: 20090619
  3. VITAMIN B-12 [Concomitant]
  4. VITAMIN B6 [Concomitant]
  5. ADVIL [Concomitant]

REACTIONS (12)
  - ABDOMINAL PAIN LOWER [None]
  - CALCULUS URETERIC [None]
  - CHILLS [None]
  - COLD SWEAT [None]
  - DECREASED APPETITE [None]
  - DEHYDRATION [None]
  - HAEMATURIA [None]
  - HEPATIC STEATOSIS [None]
  - HYPERHIDROSIS [None]
  - LIPASE INCREASED [None]
  - PYREXIA [None]
  - RENAL FAILURE [None]
